FAERS Safety Report 14637810 (Version 1)
Quarter: 2018Q1

REPORT INFORMATION
  Report Type: Spontaneous
  Country: US (occurrence: US)
  Receive Date: 20180314
  Receipt Date: 20180314
  Transmission Date: 20180509
  Serious: No
  Sender: FDA-Public Use
  Company Number: US-BIOGEN-2014BI094135

PATIENT
  Sex: Female

DRUGS (2)
  1. AVONEX [Suspect]
     Active Substance: INTERFERON BETA-1A
     Route: 030
     Dates: start: 20010330, end: 20150528
  2. AVONEX [Suspect]
     Active Substance: INTERFERON BETA-1A
     Indication: MULTIPLE SCLEROSIS
     Route: 030
     Dates: start: 2001

REACTIONS (14)
  - Carpal tunnel syndrome [Not Recovered/Not Resolved]
  - Vertigo [Not Recovered/Not Resolved]
  - Stress [Recovered/Resolved]
  - Temperature intolerance [Recovered/Resolved]
  - Arthritis [Not Recovered/Not Resolved]
  - Arthropod bite [Recovered/Resolved]
  - Eczema [Not Recovered/Not Resolved]
  - Musculoskeletal disorder [Recovered/Resolved]
  - Muscle injury [Recovered/Resolved]
  - Nerve injury [Not Recovered/Not Resolved]
  - Endocrine disorder [Not Recovered/Not Resolved]
  - Alopecia [Recovered/Resolved]
  - Arthropathy [Unknown]
  - Weight decreased [Unknown]

NARRATIVE: CASE EVENT DATE: 2001
